FAERS Safety Report 6652688-2 (Version None)
Quarter: 2010Q1

REPORT INFORMATION
  Report Type: 
  Country: None (occurrence: None)
  Receive Date: 20100326
  Receipt Date: 20100315
  Transmission Date: 20100710
  Serious: No
  Sender: FDA-Public Use
  Company Number: US-B.I. PHARMACEUTICALS,INC./RIDGEFIELD-2008-BP-00158BP

PATIENT
  Sex: Female

DRUGS (5)
  1. SPIRIVA [Suspect]
     Indication: CHRONIC OBSTRUCTIVE PULMONARY DISEASE
     Dosage: 18 MCG
     Route: 055
     Dates: start: 20060101
  2. SPIRIVA [Suspect]
     Indication: EMPHYSEMA
  3. SPIRIVA [Suspect]
     Indication: ASTHMA
  4. WELLBUTRIN [Concomitant]
     Indication: DEPRESSION
  5. LAMICTAL CD [Concomitant]
     Indication: DEPRESSION

REACTIONS (2)
  - DRUG INEFFECTIVE [None]
  - THERAPEUTIC REACTION TIME DECREASED [None]
